FAERS Safety Report 23709172 (Version 1)
Quarter: 2024Q2

REPORT INFORMATION
  Report Type: Spontaneous
  Country: US (occurrence: None)
  Receive Date: 20240404
  Receipt Date: 20240404
  Transmission Date: 20240715
  Serious: No
  Sender: FDA-Public Use
  Company Number: 2024A063003

PATIENT
  Sex: Female

DRUGS (4)
  1. FARXIGA [Suspect]
     Active Substance: DAPAGLIFLOZIN PROPANEDIOL
     Indication: Chronic kidney disease
     Route: 048
  2. FARXIGA [Suspect]
     Active Substance: DAPAGLIFLOZIN PROPANEDIOL
     Indication: Chronic kidney disease
     Route: 048
  3. FARXIGA [Suspect]
     Active Substance: DAPAGLIFLOZIN PROPANEDIOL
     Indication: Chronic kidney disease
     Route: 048
  4. RYBELSUS [Concomitant]
     Active Substance: SEMAGLUTIDE

REACTIONS (2)
  - Blood glucose decreased [Unknown]
  - Condition aggravated [Unknown]
